FAERS Safety Report 9695946 (Version 1)
Quarter: 2013Q4

REPORT INFORMATION
  Report Type: Spontaneous
  Country: US (occurrence: None)
  Receive Date: 20131118
  Receipt Date: 20131118
  Transmission Date: 20140711
  Serious: Yes (Life-Threatening, Disabling)
  Sender: FDA-Public Use
  Company Number: None

PATIENT
  Age: 71 None
  Sex: Male
  Weight: 81.65 kg

DRUGS (3)
  1. ICLUSIG [Suspect]
     Indication: CHRONIC MYELOID LEUKAEMIA
     Route: 048
     Dates: start: 20130811, end: 20130818
  2. ADVAIR [Concomitant]
  3. TAMSULOSIN HCL [Concomitant]

REACTIONS (5)
  - Chest discomfort [None]
  - Nocturia [None]
  - Nipple pain [None]
  - Tremor [None]
  - Heart rate increased [None]
